FAERS Safety Report 18046178 (Version 1)
Quarter: 2020Q3

REPORT INFORMATION
  Report Type: Spontaneous
  Country: GB (occurrence: GB)
  Receive Date: 20200721
  Receipt Date: 20200721
  Transmission Date: 20201103
  Serious: Yes (Other)
  Sender: FDA-Public Use
  Company Number: GB-BRISTOL-MYERS SQUIBB COMPANY-BMS-2020-057908

PATIENT
  Age: 49 Year

DRUGS (12)
  1. WARFARIN SODIUM. [Suspect]
     Active Substance: WARFARIN SODIUM
     Dosage: 18 MILLIGRAM
     Route: 065
     Dates: start: 20200609, end: 20200609
  2. ENOXAPARIN [Concomitant]
     Active Substance: ENOXAPARIN
     Dosage: 138 MILLIGRAM PER DAY
     Route: 065
     Dates: start: 20200609
  3. PARACETAMOL [Concomitant]
     Active Substance: ACETAMINOPHEN
     Indication: PRODUCT USED FOR UNKNOWN INDICATION
     Dosage: 1?2 QDS PRN
     Route: 065
  4. WARFARIN SODIUM. [Suspect]
     Active Substance: WARFARIN SODIUM
     Dosage: 21 MILLIGRAM
     Route: 065
     Dates: start: 20200508, end: 20200508
  5. WARFARIN SODIUM. [Suspect]
     Active Substance: WARFARIN SODIUM
     Indication: AORTIC VALVE REPLACEMENT
     Dosage: 22.5 MILLIGRAM
     Route: 065
     Dates: start: 20200526, end: 20200526
  6. WARFARIN SODIUM. [Suspect]
     Active Substance: WARFARIN SODIUM
     Dosage: 18 MILLIGRAM
     Route: 065
     Dates: start: 20200522
  7. WARFARIN SODIUM. [Suspect]
     Active Substance: WARFARIN SODIUM
     Dosage: 22.5 MILLIGRAM
     Route: 065
     Dates: start: 20200505, end: 20200507
  8. ENOXAPARIN [Concomitant]
     Active Substance: ENOXAPARIN
     Dosage: 93 MILLIGRAM, Q12H
     Route: 065
     Dates: start: 20200605
  9. ENOXAPARIN [Concomitant]
     Active Substance: ENOXAPARIN
     Indication: PRODUCT USED FOR UNKNOWN INDICATION
     Dosage: 80 MILLIGRAM, Q12H
     Route: 065
     Dates: start: 20200522
  10. BISOPROLOL [Concomitant]
     Active Substance: BISOPROLOL
     Indication: PRODUCT USED FOR UNKNOWN INDICATION
     Dosage: 1.25 MILLIGRAM PER DAY
     Route: 065
  11. WARFARIN SODIUM. [Suspect]
     Active Substance: WARFARIN SODIUM
     Dosage: 19.5 MILLIGRAM
     Route: 065
     Dates: start: 20200527, end: 20200528
  12. ENOXAPARIN [Concomitant]
     Active Substance: ENOXAPARIN
     Dosage: 80 MILLIGRAM, Q12H
     Route: 065
     Dates: start: 20200526

REACTIONS (2)
  - Haematuria [Recovered/Resolved]
  - International normalised ratio abnormal [Not Recovered/Not Resolved]

NARRATIVE: CASE EVENT DATE: 202005
